FAERS Safety Report 11117037 (Version 2)
Quarter: 2015Q3

REPORT INFORMATION
  Report Type: Spontaneous
  Country: US (occurrence: US)
  Receive Date: 20150515
  Receipt Date: 20150818
  Transmission Date: 20151125
  Serious: Yes (Hospitalization)
  Sender: FDA-Public Use
  Company Number: US-PFIZER INC-2015157328

PATIENT
  Age: 86 Year
  Sex: Female

DRUGS (21)
  1. COLACE [Concomitant]
     Active Substance: DOCUSATE SODIUM
     Dosage: 1, 2X/DAY
  2. LEVOXYL [Concomitant]
     Active Substance: LEVOTHYROXINE SODIUM
     Dosage: 88 ?G, DAILY
     Route: 048
  3. LYRICA [Suspect]
     Active Substance: PREGABALIN
     Dosage: 50 MG, BEDTIME
     Route: 048
  4. METOPROLOL ER [Concomitant]
     Active Substance: METOPROLOL SUCCINATE
     Dosage: 50 MG, AM
  5. CENTRUM SILVER [Concomitant]
     Active Substance: VITAMINS
     Dosage: UNK UNK, DAILY
  6. CITRACAL [Concomitant]
     Active Substance: CALCIUM CITRATE
     Dosage: 1 DAILY
  7. IRON [Concomitant]
     Active Substance: IRON
     Dosage: UNK, 2X/DAY
  8. LYRICA [Suspect]
     Active Substance: PREGABALIN
     Indication: DIABETIC NEUROPATHY
     Dosage: 50 MG, 2X/DAY
     Route: 048
  9. ARANESP [Concomitant]
     Active Substance: DARBEPOETIN ALFA
     Indication: HAEMOGLOBIN DECREASED
     Dosage: Q 3 WEEKS AS NEEDED FOR HGB LESS THAN 11)
     Dates: end: 201411
  10. LISINOPRIL. [Concomitant]
     Active Substance: LISINOPRIL
     Dosage: 20 MG, DAILY
  11. TRADJENTA [Concomitant]
     Active Substance: LINAGLIPTIN
     Dosage: 5 MG, DAILY
  12. LEVOTHYROXINE. [Concomitant]
     Active Substance: LEVOTHYROXINE
     Dosage: 88 ?G, UNK
  13. PLAVIX [Concomitant]
     Active Substance: CLOPIDOGREL BISULFATE
     Dosage: 75 MG, DAILY
     Dates: start: 20140626
  14. METOPROLOL ER [Concomitant]
     Active Substance: METOPROLOL SUCCINATE
     Dosage: 25 MG, PM
  15. PANTOPRAZOLE [Concomitant]
     Active Substance: PANTOPRAZOLE SODIUM
     Dosage: 40 MG, DAILY
  16. OSTEO BI FLEX [Concomitant]
     Dosage: 1 DF, DAILY
  17. CO Q [Concomitant]
     Dosage: 100 MG, DAILY
  18. SLOW MAG [Concomitant]
     Active Substance: MAGNESIUM CHLORIDE
     Dosage: 143 MG, 2X/DAY
  19. ATORVASTATIN [Concomitant]
     Active Substance: ATORVASTATIN
     Dosage: 40 MG, DAILY
  20. ASPIRIN 81 [Concomitant]
     Dosage: 81 MG, DAILY
  21. TYLENOL EXTRA STRENGTH [Concomitant]
     Active Substance: ACETAMINOPHEN
     Indication: PAIN
     Dosage: EXTRA STRENGTH 2 AS NEEDED

REACTIONS (3)
  - Pain [Recovered/Resolved]
  - Haemoglobin decreased [Recovered/Resolved]
  - Chest pain [Recovered/Resolved]
